FAERS Safety Report 10231034 (Version 1)
Quarter: 2014Q2

REPORT INFORMATION
  Report Type: Spontaneous
  Country: US (occurrence: None)
  Receive Date: 20140610
  Receipt Date: 20140610
  Transmission Date: 20141212
  Serious: Yes (Hospitalization)
  Sender: FDA-Public Use
  Company Number: None

PATIENT
  Age: 56 Year
  Sex: Male

DRUGS (23)
  1. AFINITOR 10MG NOVARTIS [Suspect]
     Indication: RENAL CANCER
     Route: 048
     Dates: start: 20140220, end: 20140504
  2. BUPROPION XL [Concomitant]
  3. WYOROCORTISONE [Concomitant]
  4. CLOTAIMAZOLE [Concomitant]
  5. CARVEDILOL [Concomitant]
  6. CEFUROXIME [Concomitant]
  7. CARAFATE [Concomitant]
  8. FUROSEMIDE [Concomitant]
  9. FENTANYL [Concomitant]
  10. DEXAMETHASONE [Concomitant]
  11. OXYCODONE [Concomitant]
  12. PRAMIPEXOLE [Concomitant]
  13. AMLODIPINE BESYLATE [Concomitant]
  14. NIACIN [Concomitant]
  15. MULTIVITAMIN [Concomitant]
  16. FISH OIL [Concomitant]
  17. VITAMIN D [Concomitant]
  18. ASPIRIN [Concomitant]
  19. ZETIA [Concomitant]
  20. FLUDROCORTISONE [Concomitant]
  21. BMX SOLUTION [Concomitant]
  22. DAILY-VITE [Concomitant]
  23. DOCQLACE [Concomitant]

REACTIONS (4)
  - White blood cell count decreased [None]
  - Balance disorder [None]
  - Fall [None]
  - Hip fracture [None]
